FAERS Safety Report 19874944 (Version 2)
Quarter: 2022Q1

REPORT INFORMATION
  Report Type: Report from Study
  Country: US (occurrence: US)
  Receive Date: 20210923
  Receipt Date: 20220204
  Transmission Date: 20220424
  Serious: Yes (Life-Threatening, Hospitalization, Other)
  Sender: FDA-Public Use
  Company Number: US-TAKEDA-2021TUS057604

PATIENT
  Sex: Male

DRUGS (1)
  1. LANADELUMAB [Suspect]
     Active Substance: LANADELUMAB
     Indication: Product used for unknown indication
     Dosage: 300 MILLIGRAM, Q2WEEKS
     Route: 058
     Dates: start: 20181128

REACTIONS (4)
  - Lung neoplasm malignant [Not Recovered/Not Resolved]
  - Pneumonia fungal [Recovering/Resolving]
  - Hereditary angioedema [Recovering/Resolving]
  - Adverse drug reaction [Recovering/Resolving]
